FAERS Safety Report 5407982-X (Version None)
Quarter: 2007Q3

REPORT INFORMATION
  Report Type: 
  Country: None (occurrence: None)
  Receive Date: 20070803
  Receipt Date: 20070720
  Transmission Date: 20080115
  Serious: Yes (Hospitalization)
  Sender: FDA-Public Use
  Company Number: URSO-2007-147

PATIENT
  Age: 53 Year
  Sex: Male

DRUGS (3)
  1. URSO 250 [Suspect]
     Indication: HEPATITIS B
     Dosage: ORAL
     Route: 048
     Dates: start: 20011101
  2. URSO 250 [Suspect]
     Indication: HEPATITIS CHRONIC ACTIVE
     Dosage: ORAL
     Route: 048
     Dates: start: 20011101
  3. ZEFIX (LAMIVUDINE) [Concomitant]

REACTIONS (5)
  - ANOREXIA [None]
  - HEPATIC STEATOSIS [None]
  - INTERSTITIAL LUNG DISEASE [None]
  - PYREXIA [None]
  - SEROCONVERSION TEST POSITIVE [None]
